FAERS Safety Report 6982611-2 (Version None)
Quarter: 2010Q3

REPORT INFORMATION
  Report Type: 
  Country: None (occurrence: None)
  Receive Date: 20100909
  Receipt Date: 20100823
  Transmission Date: 20110219
  Serious: Yes (Other)
  Sender: FDA-Public Use
  Company Number: 20100405

PATIENT
  Age: 60 Year
  Sex: Female

DRUGS (2)
  1. METHYLENE BLUE INJECTION, USP (0301-10) 1% [Suspect]
     Dosage: 5 MG/KG IN 500 ML NSS INTRAVENOUS
     Route: 042
  2. FLUOXETINE [Concomitant]

REACTIONS (6)
  - APHASIA [None]
  - CONFUSIONAL STATE [None]
  - ENCEPHALOPATHY [None]
  - LETHARGY [None]
  - MENTAL STATUS CHANGES [None]
  - VERTIGO [None]
